FAERS Safety Report 9897900 (Version 1)
Quarter: 2014Q1

REPORT INFORMATION
  Report Type: Spontaneous
  Country: US (occurrence: US)
  Receive Date: 20140214
  Receipt Date: 20140214
  Transmission Date: 20141002
  Serious: No
  Sender: FDA-Public Use
  Company Number: US-PFIZER INC-2014040652

PATIENT
  Age: 68 Year
  Sex: Male
  Weight: 90.7 kg

DRUGS (11)
  1. LYRICA [Suspect]
     Indication: DIABETIC NEUROPATHY
     Dosage: 50 MG, 2X/DAY
     Route: 048
     Dates: start: 2013
  2. LYRICA [Suspect]
     Dosage: 75 MG, 2X/DAY
     Route: 048
  3. METOPROLOL [Concomitant]
     Dosage: 100 MG, 1X/DAY
  4. TAMSULOSIN [Concomitant]
     Dosage: 0.4 MG, 1X/DAY
  5. METFORMIN [Concomitant]
     Dosage: 1000 MG, 2X/DAY
  6. JANUVIA [Concomitant]
     Dosage: 100 MG, 1X/DAY
  7. CLOPIDOGREL [Concomitant]
     Dosage: 75 MG, 1X/DAY
  8. AMLODIPINE [Concomitant]
     Dosage: 10 MG, 1X/DAY
  9. ATORVASTATIN [Concomitant]
     Dosage: 40 MG, 1X/DAY
  10. BYSTOLIC [Concomitant]
     Dosage: 10 MG, DAILY
  11. ASPIRIN [Concomitant]
     Dosage: 81 MG, 1X/DAY

REACTIONS (1)
  - Vision blurred [Unknown]
